FAERS Safety Report 4973072-3 (Version None)
Quarter: 2006Q2

REPORT INFORMATION
  Report Type: 
  Country: None (occurrence: None)
  Receive Date: 20060414
  Receipt Date: 20060403
  Transmission Date: 20061013
  Serious: Yes (Hospitalization)
  Sender: FDA-Public Use
  Company Number: GB-ROCHE-443667

PATIENT
  Age: 15 Year
  Sex: Male

DRUGS (2)
  1. ROACCUTANE [Suspect]
     Indication: DRUG USE FOR UNKNOWN INDICATION
     Route: 065
     Dates: start: 20051015, end: 20060303
  2. ROACCUTANE [Suspect]
     Route: 065
     Dates: start: 20060304, end: 20060304

REACTIONS (6)
  - APHASIA [None]
  - COORDINATION ABNORMAL [None]
  - FATIGUE [None]
  - IMMOBILE [None]
  - SENSATION OF HEAVINESS [None]
  - SOMNOLENCE [None]
